FAERS Safety Report 13153940 (Version 2)
Quarter: 2017Q1

REPORT INFORMATION
  Report Type: Spontaneous
  Country: IT (occurrence: IT)
  Receive Date: 20170126
  Receipt Date: 20170203
  Transmission Date: 20170428
  Serious: Yes (Other)
  Sender: FDA-Public Use
  Company Number: IT-TEVA-732585ACC

PATIENT
  Age: 18 Year
  Sex: Male

DRUGS (2)
  1. AMOXICILLINA E ACIDO CLAVULANICO TEVA GENERICS [Suspect]
     Active Substance: AMOXICILLIN\CLAVULANIC ACID
     Indication: EAR INFECTION
     Dosage: AMOXICILLIN/CLAVULANIC: 875 MG/125 MG
     Route: 048
     Dates: start: 20161107, end: 20161107
  2. TACHIPIRINA [Suspect]
     Active Substance: ACETAMINOPHEN
     Indication: PAIN
     Route: 048
     Dates: start: 20161107, end: 20161107

REACTIONS (4)
  - Burning sensation [Recovered/Resolved]
  - Choking sensation [Recovered/Resolved]
  - Flushing [Recovered/Resolved]
  - Pain [Recovered/Resolved]

NARRATIVE: CASE EVENT DATE: 20161107
